FAERS Safety Report 20206560 (Version 1)
Quarter: 2021Q4

REPORT INFORMATION
  Report Type: Spontaneous
  Country: US (occurrence: None)
  Receive Date: 20211218
  Receipt Date: 20211218
  Transmission Date: 20220304
  Serious: No
  Sender: FDA-Public Use
  Company Number: None

PATIENT
  Sex: Male

DRUGS (12)
  1. ABIRATERONE ACETATE [Suspect]
     Active Substance: ABIRATERONE ACETATE
     Indication: Prostate cancer
     Dosage: FREQUENCY : DAILY;?
     Route: 048
  2. PREDNISONE [Suspect]
     Active Substance: PREDNISONE
  3. ABIRATERONE [Concomitant]
     Active Substance: ABIRATERONE
  4. AIMOVIG [Concomitant]
     Active Substance: ERENUMAB-AOOE
  5. ATENOLOL [Concomitant]
     Active Substance: ATENOLOL
  6. BICALUTAMIDE [Concomitant]
     Active Substance: BICALUTAMIDE
  7. IBUPROFEN [Concomitant]
     Active Substance: IBUPROFEN
  8. OMEPRAZOLE [Concomitant]
     Active Substance: OMEPRAZOLE
  9. OXYCODONE [Concomitant]
     Active Substance: OXYCODONE
  10. PREDNISONE [Concomitant]
     Active Substance: PREDNISONE
  11. TAMSULOSIN [Concomitant]
     Active Substance: TAMSULOSIN
  12. TYLENOL [Concomitant]
     Active Substance: ACETAMINOPHEN

REACTIONS (3)
  - Back pain [None]
  - Spinal operation [None]
  - Neoplasm [None]
